FAERS Safety Report 8166640-1 (Version None)
Quarter: 2012Q1

REPORT INFORMATION
  Report Type: 
  Country: None (occurrence: None)
  Receive Date: 20120227
  Receipt Date: 20120222
  Transmission Date: 20120608
  Serious: Yes (Death)
  Sender: FDA-Public Use
  Company Number: DE-ABBOTT-11P-062-0716335-00

PATIENT
  Sex: Male
  Weight: 75 kg

DRUGS (4)
  1. KALETRA [Suspect]
     Indication: HIV INFECTION
     Dosage: 2 TABLETS IN AMS AND 2 TABLETS IN PMS
     Route: 048
     Dates: start: 20080211, end: 20101222
  2. TRUVADA [Concomitant]
     Indication: HIV INFECTION
     Dosage: 200MG/245 MG OPD
     Route: 048
     Dates: start: 20080211, end: 20101222
  3. KALETRA [Suspect]
     Indication: HIV INFECTION CDC CATEGORY C3
  4. TRUVADA [Concomitant]
     Indication: HIV INFECTION CDC CATEGORY C3

REACTIONS (2)
  - MULTI-ORGAN FAILURE [None]
  - HODGKIN'S DISEASE STAGE IV [None]
